FAERS Safety Report 9154054 (Version 1)
Quarter: 2013Q1

REPORT INFORMATION
  Report Type: Report from Study
  Country: CA (occurrence: CA)
  Receive Date: 20130311
  Receipt Date: 20130311
  Transmission Date: 20140127
  Serious: Yes (Other)
  Sender: FDA-Public Use
  Company Number: CA-JNJFOC-20130216300

PATIENT
  Age: 30 Year
  Sex: Female
  Weight: 49 kg

DRUGS (3)
  1. REMICADE [Suspect]
     Indication: CROHN^S DISEASE
     Route: 042
     Dates: start: 20120220
  2. REMICADE [Suspect]
     Indication: CROHN^S DISEASE
     Dosage: 15 INFUSIONS IN 2006
     Route: 042
     Dates: start: 2006
  3. METHOTREXATE [Concomitant]
     Route: 048

REACTIONS (2)
  - Fistula [Recovered/Resolved]
  - Headache [Recovered/Resolved]
